FAERS Safety Report 23269221 (Version 1)
Quarter: 2023Q4

REPORT INFORMATION
  Report Type: Report from Study
  Country: DE (occurrence: DE)
  Receive Date: 20231207
  Receipt Date: 20231207
  Transmission Date: 20240110
  Serious: Yes (Other)
  Sender: FDA-Public Use
  Company Number: DE-JNJFOC-20231200577

PATIENT
  Sex: Male

DRUGS (2)
  1. ZYTIGA [Suspect]
     Active Substance: ABIRATERONE ACETATE
     Indication: Prostate cancer
     Route: 048
  2. CORTISONE [Suspect]
     Active Substance: CORTISONE
     Indication: Prostate cancer
     Route: 065

REACTIONS (2)
  - Diabetes mellitus [Unknown]
  - Adverse event [Unknown]
